FAERS Safety Report 24150863 (Version 1)
Quarter: 2024Q3

REPORT INFORMATION
  Report Type: Spontaneous
  Country: US (occurrence: US)
  Receive Date: 20240730
  Receipt Date: 20240730
  Transmission Date: 20241017
  Serious: No
  Sender: PADAGIS
  Company Number: US-PADAGIS-2024PAD01215

PATIENT

DRUGS (2)
  1. TESTOSTERONE CYPIONATE [Suspect]
     Active Substance: TESTOSTERONE CYPIONATE
     Indication: Hormone replacement therapy
     Dosage: 1 ML, WEEKLY
     Route: 065
  2. TESTOSTERONE CYPIONATE [Suspect]
     Active Substance: TESTOSTERONE CYPIONATE
     Dosage: (BOTH SUN AND PERRIG) (PAST 15 PLUS YEARS)
     Route: 065

REACTIONS (2)
  - Disease recurrence [Unknown]
  - Drug ineffective [Unknown]
